FAERS Safety Report 8112286-0 (Version None)
Quarter: 2012Q1

REPORT INFORMATION
  Report Type: 
  Country: None (occurrence: None)
  Receive Date: 20120203
  Receipt Date: 20120203
  Transmission Date: 20120608
  Serious: Yes (Other)
  Sender: FDA-Public Use
  Company Number: None

PATIENT
  Age: 37 Year
  Sex: Male
  Weight: 95.254 kg

DRUGS (1)
  1. BENZONATATE [Suspect]
     Indication: UPPER RESPIRATORY TRACT INFECTION
     Dosage: 1-2 CAPSULES
     Route: 048
     Dates: start: 20120108, end: 20120128

REACTIONS (6)
  - FEELING ABNORMAL [None]
  - PRESYNCOPE [None]
  - URTICARIA [None]
  - DOCUMENTED HYPERSENSITIVITY TO ADMINISTERED DRUG [None]
  - HYPERHIDROSIS [None]
  - DRUG DOSE OMISSION [None]
